FAERS Safety Report 4432376-3 (Version None)
Quarter: 2004Q3

REPORT INFORMATION
  Report Type: 
  Country: None (occurrence: None)
  Receive Date: 20040818
  Receipt Date: 20040729
  Transmission Date: 20050211
  Serious: Yes (Death, Hospitalization, Other)
  Sender: FDA-Public Use
  Company Number: USA040773909

PATIENT
  Age: 70 Year
  Sex: Male
  Weight: 98 kg

DRUGS (2)
  1. HUMALOG [Suspect]
     Dates: start: 20010101
  2. HUMULIN N [Suspect]
     Dates: start: 20010101

REACTIONS (2)
  - CARDIAC DISORDER [None]
  - HEART VALVE REPLACEMENT [None]
